FAERS Safety Report 4876689-X (Version None)
Quarter: 2006Q1

REPORT INFORMATION
  Report Type: 
  Country: None (occurrence: None)
  Receive Date: 20060110
  Receipt Date: 20050801
  Transmission Date: 20060701
  Serious: Yes (Hospitalization, Other)
  Sender: FDA-Public Use
  Company Number: US-MERCK-0508USA00354

PATIENT
  Age: 53 Year
  Sex: Male
  Weight: 125 kg

DRUGS (6)
  1. VIOXX [Suspect]
     Indication: ARTHRITIS
     Route: 048
     Dates: start: 20011001, end: 20030101
  2. VIOXX [Suspect]
     Route: 048
     Dates: start: 20011001, end: 20030101
  3. VIOXX [Suspect]
     Indication: BACK PAIN
     Route: 048
     Dates: start: 20011001, end: 20030101
  4. VIOXX [Suspect]
     Route: 048
     Dates: start: 20011001, end: 20030101
  5. ASPIRIN [Concomitant]
     Route: 065
  6. TYLENOL [Concomitant]
     Route: 065

REACTIONS (14)
  - ACROCHORDON [None]
  - AMNESIA [None]
  - ARRHYTHMIA [None]
  - CALCULUS URINARY [None]
  - CARDIAC MURMUR [None]
  - CHEST PAIN [None]
  - CORONARY ARTERY DISEASE [None]
  - GRANULOMA [None]
  - HYDRONEPHROSIS [None]
  - HYPERTENSION [None]
  - HYPERTRIGLYCERIDAEMIA [None]
  - LIP DISORDER [None]
  - MYOCARDIAL INFARCTION [None]
  - SYNCOPE [None]
